FAERS Safety Report 7382183-7 (Version None)
Quarter: 2011Q1

REPORT INFORMATION
  Report Type: 
  Country: None (occurrence: None)
  Receive Date: 20110329
  Receipt Date: 20101223
  Transmission Date: 20110831
  Serious: No
  Sender: FDA-Public Use
  Company Number: US-BAYER-2011-024699

PATIENT
  Sex: Female
  Weight: 66 kg

DRUGS (1)
  1. MULTI-VITAMINS [Suspect]
     Indication: VITAMIN SUPPLEMENTATION

REACTIONS (1)
  - FAECES DISCOLOURED [None]
